FAERS Safety Report 26047448 (Version 1)
Quarter: 2025Q4

REPORT INFORMATION
  Report Type: Spontaneous
  Country: EU (occurrence: EU)
  Receive Date: 20251114
  Receipt Date: 20251114
  Transmission Date: 20260118
  Serious: Yes (Other)
  Sender: NOVARTIS
  Company Number: None

PATIENT
  Age: 64 Year
  Sex: Male
  Weight: 121 kg

DRUGS (5)
  1. SANDOSTATIN [Suspect]
     Active Substance: OCTREOTIDE ACETATE
     Indication: Benign pancreatic neoplasm
     Dosage: 100 UG, Q12H
     Route: 058
     Dates: start: 20221209, end: 20221209
  2. SANDOSTATIN [Suspect]
     Active Substance: OCTREOTIDE ACETATE
     Indication: Hypoglycaemia
  3. SANDOSTATIN [Suspect]
     Active Substance: OCTREOTIDE ACETATE
  4. Glukoza [Concomitant]
     Indication: Hypoglycaemia
     Dosage: 500 ML, Q12H
     Route: 042
     Dates: start: 20221209
  5. Carzap hct [Concomitant]
     Indication: Essential hypertension
     Dosage: 1 DOSAGE FORM, Q24H
     Route: 048

REACTIONS (3)
  - Abdominal pain upper [Recovered/Resolved]
  - Restlessness [Recovered/Resolved]
  - Dyspnoea [Recovered/Resolved]
